FAERS Safety Report 22966262 (Version 2)
Quarter: 2025Q4

REPORT INFORMATION
  Report Type: Spontaneous
  Country: EU (occurrence: EU)
  Receive Date: 20230921
  Receipt Date: 20251230
  Transmission Date: 20260117
  Serious: Yes (Hospitalization, Other)
  Sender: MYLAN
  Company Number: EU-SANDOZ-SDZ2023IT018947

PATIENT
  Age: 61 Year
  Sex: Male
  Weight: 85 kg

DRUGS (4)
  1. METFORMIN [Suspect]
     Active Substance: METFORMIN HYDROCHLORIDE
     Indication: Type 2 diabetes mellitus
     Dosage: UNK
  2. PIOGLITAZONE [Suspect]
     Active Substance: PIOGLITAZONE
     Indication: Type 2 diabetes mellitus
     Dosage: UNK
  3. CANAGLIFLOZIN ANHYDROUS [Suspect]
     Active Substance: CANAGLIFLOZIN ANHYDROUS
     Indication: Type 2 diabetes mellitus
     Dosage: UNK
  4. GLIMEPIRIDE [Suspect]
     Active Substance: GLIMEPIRIDE
     Indication: Type 2 diabetes mellitus
     Dosage: UNK

REACTIONS (3)
  - Necrotising oesophagitis [Unknown]
  - Metabolic acidosis [Unknown]
  - Oesophageal candidiasis [Unknown]
